FAERS Safety Report 18978828 (Version 2)
Quarter: 2021Q1

REPORT INFORMATION
  Report Type: Other
  Country: CA (occurrence: CA)
  Receive Date: 20210308
  Receipt Date: 20210309
  Transmission Date: 20210420
  Serious: Yes (Hospitalization, Other)
  Sender: FDA-Public Use
  Company Number: CA-ROCHE-2512733

PATIENT
  Sex: Female

DRUGS (8)
  1. CHLORTHALIDONE. [Concomitant]
     Active Substance: CHLORTHALIDONE
  2. OCREVUS [Suspect]
     Active Substance: OCRELIZUMAB
     Indication: RELAPSING-REMITTING MULTIPLE SCLEROSIS
     Dosage: LIQUID 300 MG AT DAY 0 AND 14, THEN 600 MG EVERY 6 MONTH
     Route: 042
     Dates: start: 20190206
  3. MODAFINIL. [Concomitant]
     Active Substance: MODAFINIL
  4. PERINDOPRIL [Concomitant]
     Active Substance: PERINDOPRIL
  5. SYNTHROID [Concomitant]
     Active Substance: LEVOTHYROXINE SODIUM
  6. LYRICA [Concomitant]
     Active Substance: PREGABALIN
  7. ASPIRIN. [Concomitant]
     Active Substance: ASPIRIN
  8. INDAPAMIDE. [Concomitant]
     Active Substance: INDAPAMIDE

REACTIONS (8)
  - Renal mass [Unknown]
  - Hypertension [Recovering/Resolving]
  - Hypertension [Recovered/Resolved]
  - Tooth loss [Not Recovered/Not Resolved]
  - Cyst [Unknown]
  - Nausea [Not Recovered/Not Resolved]
  - Stress [Unknown]
  - Dizziness [Recovering/Resolving]
